FAERS Safety Report 11791910 (Version 9)
Quarter: 2016Q2

REPORT INFORMATION
  Report Type: Report from Study
  Country: AT (occurrence: AT)
  Receive Date: 20151201
  Receipt Date: 20160616
  Transmission Date: 20160815
  Serious: Yes (Death, Hospitalization, Other)
  Sender: FDA-Public Use
  Company Number: AT-INCYTE CORPORATION-2014IN003013

PATIENT
  Age: 76 Year
  Sex: Male
  Weight: 94.1 kg

DRUGS (74)
  1. RAMIPRIL. [Concomitant]
     Active Substance: RAMIPRIL
     Route: 065
  2. LUMIGAN [Concomitant]
     Active Substance: BIMATOPROST
     Indication: HYPERTENSION
     Dosage: 0.3 MG, QD (AT)
     Route: 065
     Dates: start: 2010
  3. MEXALEN [Concomitant]
     Active Substance: ACETAMINOPHEN
     Indication: PRODUCT USED FOR UNKNOWN INDICATION
     Dosage: 500 MG, AS NEEDED (MAX 3 DOSE PER DAY
  4. ISOPHANE INSULIN [Concomitant]
     Active Substance: INSULIN NOS
     Route: 065
  5. TAZOBACTAM [Concomitant]
     Active Substance: TAZOBACTAM
     Indication: HERPES ZOSTER MENINGITIS
     Route: 065
  6. TAZOBACTAM [Concomitant]
     Active Substance: TAZOBACTAM
     Route: 065
  7. TRADJENTA [Concomitant]
     Active Substance: LINAGLIPTIN
     Indication: DIABETES MELLITUS
     Dosage: UNK
     Route: 065
  8. AMLODIPINE [Concomitant]
     Active Substance: AMLODIPINE BESYLATE
     Dosage: 5 MG, QD
  9. ALNA [Concomitant]
     Active Substance: TAMSULOSIN HYDROCHLORIDE
     Dosage: 0.4 MG, BID
  10. MEXALEN [Concomitant]
     Active Substance: ACETAMINOPHEN
     Route: 065
  11. MEXALEN [Concomitant]
     Active Substance: ACETAMINOPHEN
     Route: 065
  12. TAZOBACTAM [Concomitant]
     Active Substance: TAZOBACTAM
     Route: 065
  13. ZOVIRAX [Concomitant]
     Active Substance: ACYCLOVIR
     Dosage: 750 MG, BID
     Route: 065
     Dates: end: 20150318
  14. JAKAFI [Suspect]
     Active Substance: RUXOLITINIB
     Dosage: 15 MG, BID
     Route: 048
     Dates: start: 20150305
  15. LASIX [Concomitant]
     Active Substance: FUROSEMIDE
     Dosage: 40 MG, QD, IN CASE OF WEIGHT GAIN
     Route: 048
     Dates: start: 20141006, end: 20141008
  16. AMARYL [Concomitant]
     Active Substance: GLIMEPIRIDE
     Indication: DIABETES MELLITUS
     Route: 065
  17. AGOPTON [Concomitant]
     Active Substance: LANSOPRAZOLE
     Indication: PRODUCT USED FOR UNKNOWN INDICATION
     Route: 065
  18. XARELTO [Concomitant]
     Active Substance: RIVAROXABAN
     Indication: ATRIAL FIBRILLATION
     Dosage: 15 MG, QD
     Route: 065
  19. HALCION [Concomitant]
     Active Substance: TRIAZOLAM
     Indication: PRODUCT USED FOR UNKNOWN INDICATION
     Route: 065
  20. UROSIN [Concomitant]
     Active Substance: ALLOPURINOL
     Indication: PRODUCT USED FOR UNKNOWN INDICATION
  21. ALNA [Concomitant]
     Active Substance: TAMSULOSIN HYDROCHLORIDE
     Indication: PRODUCT USED FOR UNKNOWN INDICATION
     Dosage: UNK
     Route: 065
  22. SERETIDE [Concomitant]
     Active Substance: FLUTICASONE PROPIONATE\SALMETEROL XINAFOATE
     Indication: CHRONIC OBSTRUCTIVE PULMONARY DISEASE
     Dosage: UNK
     Route: 065
     Dates: start: 20130615
  23. ISOPHANE INSULIN [Concomitant]
     Active Substance: INSULIN NOS
     Route: 065
  24. TAZOBACTAM [Concomitant]
     Active Substance: TAZOBACTAM
     Route: 065
  25. ZOVIRAX [Concomitant]
     Active Substance: ACYCLOVIR
     Indication: HERPES ZOSTER MENINGITIS
     Dosage: 500 MG, BID
     Route: 065
     Dates: start: 20150305
  26. AGOPTON [Concomitant]
     Active Substance: LANSOPRAZOLE
     Indication: PROPHYLAXIS AGAINST GASTROINTESTINAL ULCER
     Route: 065
  27. RAMIPRIL. [Concomitant]
     Active Substance: RAMIPRIL
     Route: 065
  28. RAMIPRIL. [Concomitant]
     Active Substance: RAMIPRIL
     Route: 065
  29. RAMIPRIL. [Concomitant]
     Active Substance: RAMIPRIL
     Route: 065
  30. RAMIPRIL. [Concomitant]
     Active Substance: RAMIPRIL
     Route: 065
  31. XARELTO [Concomitant]
     Active Substance: RIVAROXABAN
     Indication: THROMBOSIS PROPHYLAXIS
     Dosage: UNK
     Route: 065
  32. XARELTO [Concomitant]
     Active Substance: RIVAROXABAN
     Dosage: 15 MG, QD
     Route: 065
  33. BANEOCIN [Concomitant]
     Indication: PAIN IN EXTREMITY
     Dosage: UNK
     Route: 065
     Dates: start: 20151014, end: 20151015
  34. AMLODIPINE [Concomitant]
     Active Substance: AMLODIPINE BESYLATE
     Dosage: 5 MG, QD
  35. ALNA [Concomitant]
     Active Substance: TAMSULOSIN HYDROCHLORIDE
     Dosage: 0.4 MG, BID
  36. JAKAFI [Suspect]
     Active Substance: RUXOLITINIB
     Indication: MYELOFIBROSIS
     Dosage: 30 MG, BID
     Route: 048
     Dates: start: 20111124
  37. GLUCOPHAGE [Concomitant]
     Active Substance: METFORMIN HYDROCHLORIDE
     Indication: DIABETES MELLITUS
     Dosage: UNK
     Route: 065
     Dates: start: 20130708
  38. XARELTO [Concomitant]
     Active Substance: RIVAROXABAN
     Dosage: 15 MG, QD
     Route: 065
  39. CONCOR [Concomitant]
     Active Substance: BISOPROLOL FUMARATE
     Indication: PRODUCT USED FOR UNKNOWN INDICATION
     Route: 065
  40. TRADJENTA [Concomitant]
     Active Substance: LINAGLIPTIN
     Dosage: 5 MG, QD
     Route: 065
  41. KALIORAL [Concomitant]
     Indication: PRODUCT USED FOR UNKNOWN INDICATION
     Route: 065
  42. AMLODIPINE [Concomitant]
     Active Substance: AMLODIPINE BESYLATE
     Indication: PRODUCT USED FOR UNKNOWN INDICATION
     Dosage: UNK
     Route: 065
  43. AMLODIPINE [Concomitant]
     Active Substance: AMLODIPINE BESYLATE
     Dosage: 5 MG, QD
  44. MEXALEN [Concomitant]
     Active Substance: ACETAMINOPHEN
     Route: 065
  45. ISOPHANE INSULIN [Concomitant]
     Active Substance: INSULIN NOS
     Route: 065
  46. LASIX [Concomitant]
     Active Substance: FUROSEMIDE
     Indication: CARDIAC FAILURE
     Dosage: UNK
     Route: 065
     Dates: start: 2010
  47. GABAPENTIN. [Concomitant]
     Active Substance: GABAPENTIN
     Indication: POLYNEUROPATHY
     Dosage: UNK
     Route: 065
     Dates: start: 20130615
  48. GABAPENTIN. [Concomitant]
     Active Substance: GABAPENTIN
     Dosage: UNK
     Route: 065
     Dates: start: 20130615
  49. GABAPENTIN. [Concomitant]
     Active Substance: GABAPENTIN
     Dosage: UNK
     Route: 065
     Dates: start: 20130615
  50. XARELTO [Concomitant]
     Active Substance: RIVAROXABAN
     Dosage: 15 MG, QD
     Route: 065
  51. MAGNESIUM VERLA                    /01455601/ [Concomitant]
     Indication: CARDIAC FAILURE
     Route: 065
  52. UROSIN [Concomitant]
     Active Substance: ALLOPURINOL
     Indication: PROPHYLAXIS
     Dosage: 100 MG, QD
     Route: 065
     Dates: start: 20141007
  53. AMLODIPINE [Concomitant]
     Active Substance: AMLODIPINE BESYLATE
     Dosage: 5 MG, QD
  54. ALNA [Concomitant]
     Active Substance: TAMSULOSIN HYDROCHLORIDE
     Dosage: 0.4 MG, BID
  55. ALNA [Concomitant]
     Active Substance: TAMSULOSIN HYDROCHLORIDE
     Dosage: 0.4 MG, BID
  56. ALLOPURINOL. [Concomitant]
     Active Substance: ALLOPURINOL
     Indication: GOUT
     Dosage: UNK
     Route: 065
     Dates: start: 19960101
  57. MEXALEN [Concomitant]
     Active Substance: ACETAMINOPHEN
     Route: 065
  58. ISOPHANE INSULIN [Concomitant]
     Active Substance: INSULIN NOS
     Indication: PRODUCT USED FOR UNKNOWN INDICATION
     Dosage: 6 IU, QD
  59. PANTOPRAZOL [Concomitant]
     Active Substance: PANTOPRAZOLE SODIUM
     Indication: PROPHYLAXIS AGAINST GASTROINTESTINAL ULCER
     Route: 065
  60. PANTOPRAZOL [Concomitant]
     Active Substance: PANTOPRAZOLE SODIUM
     Indication: PRODUCT USED FOR UNKNOWN INDICATION
     Route: 065
  61. LASIX [Concomitant]
     Active Substance: FUROSEMIDE
     Indication: DIURETIC THERAPY
     Dosage: 2 DF, UNK
     Route: 042
     Dates: start: 20141006, end: 20141006
  62. METFORMIN [Concomitant]
     Active Substance: METFORMIN HYDROCHLORIDE
     Indication: DIABETES MELLITUS
     Dosage: UNK
     Route: 065
     Dates: start: 20130315, end: 201410
  63. XARELTO [Concomitant]
     Active Substance: RIVAROXABAN
     Dosage: 15 MG, QD
     Route: 065
  64. TRADJENTA [Concomitant]
     Active Substance: LINAGLIPTIN
     Dosage: 5 MG, QD
     Route: 065
  65. KALIORAL [Concomitant]
     Indication: PROPHYLAXIS
     Route: 065
  66. AMLODIPINE [Concomitant]
     Active Substance: AMLODIPINE BESYLATE
     Dosage: 5 MG, QD
  67. ISOPHANE INSULIN [Concomitant]
     Active Substance: INSULIN NOS
     Route: 065
  68. TAZOBACTAM [Concomitant]
     Active Substance: TAZOBACTAM
     Route: 065
  69. RAMIPRIL. [Concomitant]
     Active Substance: RAMIPRIL
     Indication: HYPERTENSION
     Route: 065
  70. TRADJENTA [Concomitant]
     Active Substance: LINAGLIPTIN
     Dosage: 5 MG, QD
     Route: 065
  71. TRADJENTA [Concomitant]
     Active Substance: LINAGLIPTIN
     Dosage: 5 MG, QD
     Route: 065
  72. TRADJENTA [Concomitant]
     Active Substance: LINAGLIPTIN
     Dosage: 5 MG, QD
     Route: 065
  73. ALNA [Concomitant]
     Active Substance: TAMSULOSIN HYDROCHLORIDE
     Dosage: 0.4 MG, BID
  74. PIPERACILLIN [Concomitant]
     Active Substance: PIPERACILLIN
     Indication: HERPES ZOSTER MENINGITIS
     Dosage: UNK
     Route: 065
     Dates: start: 20150305, end: 20150307

REACTIONS (42)
  - Herpes zoster meningitis [Recovered/Resolved]
  - Diabetes mellitus [Unknown]
  - Hypoxia [Unknown]
  - Glaucoma [Unknown]
  - Pleural effusion [Unknown]
  - Intervertebral disc protrusion [Recovered/Resolved]
  - Blood creatinine increased [Unknown]
  - Blood uric acid increased [Unknown]
  - Atrial fibrillation [Unknown]
  - Confusional state [Unknown]
  - Pericardial effusion [Unknown]
  - Blood glucose increased [Unknown]
  - Fall [Unknown]
  - Hepatic congestion [Unknown]
  - Sleep apnoea syndrome [Unknown]
  - Umbilical hernia [Unknown]
  - Aortic arteriosclerosis [Unknown]
  - Splenomegaly [Unknown]
  - Pain in extremity [Recovered/Resolved]
  - Vasculitis [Unknown]
  - Herpes zoster [Recovered/Resolved]
  - Cardiac failure [Not Recovered/Not Resolved]
  - Dyspnoea [Recovered/Resolved]
  - Spinal osteoarthritis [Unknown]
  - Lymphopenia [Unknown]
  - Obesity [Unknown]
  - Cardiomegaly [Unknown]
  - Cardiac death [Fatal]
  - Encephalitis [Recovered/Resolved]
  - Lung disorder [Unknown]
  - N-terminal prohormone brain natriuretic peptide increased [Unknown]
  - Acute myocardial infarction [Fatal]
  - Cor pulmonale [Unknown]
  - Chronic kidney disease [Unknown]
  - Cholelithiasis [Unknown]
  - Pulmonary hilar enlargement [Unknown]
  - Lymphocyte count decreased [Unknown]
  - Hypertension [Unknown]
  - Haemoglobin decreased [Unknown]
  - Ascites [Unknown]
  - Gallbladder disorder [Unknown]
  - Neutrophil count increased [Unknown]

NARRATIVE: CASE EVENT DATE: 20141006
